FAERS Safety Report 4979131-3 (Version None)
Quarter: 2006Q2

REPORT INFORMATION
  Report Type: 
  Country: None (occurrence: None)
  Receive Date: 20060421
  Receipt Date: 20060411
  Transmission Date: 20061013
  Serious: Yes (Life-Threatening)
  Sender: FDA-Public Use
  Company Number: JP-JNJFOC-20060402745

PATIENT
  Age: 67 Year
  Sex: Male

DRUGS (4)
  1. ITRIZOLE [Suspect]
     Indication: PROPHYLAXIS
     Route: 048
     Dates: start: 20060206, end: 20060227
  2. FLUCONAZOLE [Concomitant]
  3. MEROPENEM TRIHYDRATE [Concomitant]
  4. VANCOMYCIN PREPARATIONS [Concomitant]

REACTIONS (1)
  - ALVEOLITIS ALLERGIC [None]
